FAERS Safety Report 6372842-7 (Version None)
Quarter: 2009Q3

REPORT INFORMATION
  Report Type: 
  Country: None (occurrence: None)
  Receive Date: 20090922
  Receipt Date: 20090922
  Transmission Date: 20100115
  Serious: No
  Sender: FDA-Public Use
  Company Number: None

PATIENT
  Sex: Male
  Weight: 19.2 kg

DRUGS (1)
  1. PRIVIGEN [Suspect]
     Indication: KAWASAKI'S DISEASE
     Dosage: 40 GM/ 400 ML Q ONCE IV
     Route: 042
     Dates: start: 20090916, end: 20090917

REACTIONS (4)
  - INFUSION RELATED REACTION [None]
  - OEDEMA PERIPHERAL [None]
  - OXYGEN SATURATION DECREASED [None]
  - SWELLING FACE [None]
